FAERS Safety Report 6656538-X (Version None)
Quarter: 2010Q1

REPORT INFORMATION
  Report Type: 
  Country: None (occurrence: None)
  Receive Date: 20100329
  Receipt Date: 20100317
  Transmission Date: 20100710
  Serious: Yes (Death)
  Sender: FDA-Public Use
  Company Number: PHHY2010IT18092

PATIENT

DRUGS (1)
  1. GLEEVEC [Suspect]
     Dosage: FOETAL DRUG EXPOSURE VIA FATHER
     Route: 065

REACTIONS (3)
  - DRUG EXPOSURE DURING PREGNANCY [None]
  - FOETAL HEART RATE ABNORMAL [None]
  - INTRA-UTERINE DEATH [None]
